FAERS Safety Report 7808771-9 (Version None)
Quarter: 2011Q4

REPORT INFORMATION
  Report Type: 
  Country: None (occurrence: None)
  Receive Date: 20111006
  Receipt Date: 20110922
  Transmission Date: 20120403
  Serious: Yes (Life-Threatening)
  Sender: FDA-Public Use
  Company Number: 2002-12-0062

PATIENT
  Age: 65 Year
  Sex: Female

DRUGS (2)
  1. REBETOL [Suspect]
     Indication: HEPATITIS VIRAL
     Dosage: 800 MG;QD;PO
     Route: 048
     Dates: start: 20020305, end: 20021012
  2. PEG-INTRON [Suspect]
     Indication: HEPATITIS VIRAL
     Dosage: 50 MCG;QW;SC
     Route: 058
     Dates: start: 20020305, end: 20021012

REACTIONS (3)
  - SUBDURAL HAEMORRHAGE [None]
  - CEREBRAL HAEMORRHAGE [None]
  - THROMBOCYTOPENIA [None]
